FAERS Safety Report 7665032-9 (Version None)
Quarter: 2011Q3

REPORT INFORMATION
  Report Type: 
  Country: None (occurrence: None)
  Receive Date: 20110806
  Receipt Date: 20110103
  Transmission Date: 20111222
  Serious: No
  Sender: FDA-Public Use
  Company Number: US-ABBOTT-11P-163-0694912-00

PATIENT
  Sex: Male
  Weight: 73.094 kg

DRUGS (6)
  1. SINGULAIR [Concomitant]
     Indication: ASTHMA
  2. NASACORT [Concomitant]
     Indication: PRODUCT USED FOR UNKNOWN INDICATION
  3. VIT D3 [Concomitant]
     Indication: PRODUCT USED FOR UNKNOWN INDICATION
  4. NIASPAN [Suspect]
     Indication: HIGH DENSITY LIPOPROTEIN DECREASED
     Dates: start: 20090101
  5. NIASPAN [Suspect]
  6. NEXIUM [Concomitant]
     Indication: GASTROOESOPHAGEAL REFLUX DISEASE

REACTIONS (3)
  - FLUSHING [None]
  - GASTROOESOPHAGEAL REFLUX DISEASE [None]
  - RHINORRHOEA [None]
